FAERS Safety Report 4469368-4 (Version None)
Quarter: 2004Q4

REPORT INFORMATION
  Report Type: 
  Country: None (occurrence: None)
  Receive Date: 20041008
  Receipt Date: 20040312
  Transmission Date: 20050328
  Serious: No
  Sender: FDA-Public Use
  Company Number: US-BRISTOL-MYERS SQUIBB COMPANY-12535282

PATIENT
  Age: 67 Year
  Sex: Female

DRUGS (1)
  1. AVAPRO [Suspect]
     Indication: HYPERTENSION
     Dosage: WAS TAKING 150MG FROM 02-MAR TO 07-MAR-2004
     Route: 048
     Dates: start: 20040302

REACTIONS (2)
  - DIARRHOEA [None]
  - STOMATITIS [None]
